FAERS Safety Report 4487823-8 (Version None)
Quarter: 2004Q4

REPORT INFORMATION
  Report Type: 
  Country: None (occurrence: None)
  Receive Date: 20041025
  Receipt Date: 20041007
  Transmission Date: 20050328
  Serious: No
  Sender: FDA-Public Use
  Company Number: S04-CAN-06657-01

PATIENT
  Age: 69 Year
  Sex: Male

DRUGS (5)
  1. TIAZAC [Suspect]
     Indication: HYPERTENSION
     Dosage: 360 MG QD PO
     Route: 048
     Dates: start: 20040902, end: 20040916
  2. TIAZAC [Suspect]
     Indication: HYPERTENSION
     Dosage: 240 MG QD PO
     Route: 048
     Dates: start: 20040806, end: 20040902
  3. ACETYLSALICYLIC ACID SRT [Concomitant]
  4. ATACAND [Concomitant]
  5. GLYBURIDE [Concomitant]

REACTIONS (2)
  - BLOOD GLUCOSE INCREASED [None]
  - HYPERTENSIVE CRISIS [None]
